FAERS Safety Report 7044789 (Version 7)
Quarter: 2013Q3

REPORT INFORMATION
  Report Type: Spontaneous
  Country: US (occurrence: US)
  Receive Date: 20090709
  Receipt Date: 20130701
  Transmission Date: 20140515
  Serious: Yes (Hospitalization)
  Sender: FDA-Public Use
  Company Number: US-BIOGENIDEC-2009BI020335

PATIENT
  Age: 55 Year
  Sex: Female
  Weight: 64 kg

DRUGS (5)
  1. TYSABRI [Suspect]
     Indication: MULTIPLE SCLEROSIS
     Route: 042
     Dates: start: 20071127, end: 200906
  2. TYSABRI [Suspect]
     Indication: MULTIPLE SCLEROSIS
     Route: 042
     Dates: start: 200909
  3. VICODIN [Concomitant]
     Indication: PAIN
  4. PHENERGAN [Concomitant]
     Indication: NAUSEA
  5. PERCOCET [Concomitant]
     Indication: FIBROMYALGIA
     Dates: start: 2006

REACTIONS (19)
  - Abdominal hernia obstructive [Recovered/Resolved]
  - Intestinal perforation [Recovered/Resolved]
  - Pneumonia pseudomonal [Recovered/Resolved]
  - Respiratory failure [Not Recovered/Not Resolved]
  - Acute respiratory distress syndrome [Recovered/Resolved]
  - Systemic inflammatory response syndrome [Unknown]
  - Pain [Not Recovered/Not Resolved]
  - Vomiting [Not Recovered/Not Resolved]
  - Abasia [Recovered/Resolved]
  - Activities of daily living impaired [Recovered/Resolved]
  - Tracheal disorder [Unknown]
  - Lower gastrointestinal haemorrhage [Unknown]
  - Rectal fissure [Unknown]
  - Haemorrhoids [Unknown]
  - Haemorrhagic anaemia [Unknown]
  - Enterobacter infection [Recovered/Resolved]
  - Candida infection [Recovered/Resolved]
  - Urine output decreased [Recovered/Resolved]
  - Rotator cuff syndrome [Unknown]
